FAERS Safety Report 6964415-X (Version None)
Quarter: 2010Q3

REPORT INFORMATION
  Report Type: 
  Country: None (occurrence: None)
  Receive Date: 20100903
  Receipt Date: 20100825
  Transmission Date: 20110219
  Serious: Yes (Other)
  Sender: FDA-Public Use
  Company Number: US-PFIZER INC-2009242677

PATIENT
  Sex: Female
  Weight: 52.608 kg

DRUGS (8)
  1. LIPITOR [Suspect]
     Indication: CEREBROVASCULAR ACCIDENT
     Dosage: 80 MG, 1X/DAY
     Route: 048
  2. AMLODIPINE BESYLATE [Suspect]
     Indication: HYPERTENSION
     Dosage: 2.5 MG, 1X/DAY
     Route: 048
  3. OLMESARTAN MEDOXOMIL [Suspect]
     Dosage: UNK
     Dates: end: 20100101
  4. LOSARTAN POTASSIUM AND HYDROCHLOROTHIAZIDE [Suspect]
     Indication: HYPERTENSION
     Dosage: [LOSARTAN 50]/[HYDROCHLOROTHIAZIDE 12.5 MG], 2X/DAY
     Route: 048
  5. NEBIVOLOL [Suspect]
     Indication: BUNDLE BRANCH BLOCK
     Dosage: 5 MG, 1X/DAY
     Route: 048
     Dates: start: 20100101
  6. NEBIVOLOL [Suspect]
     Indication: PALPITATIONS
  7. NEBIVOLOL [Suspect]
     Indication: BLOOD PRESSURE MANAGEMENT
  8. PROTONIX [Concomitant]
     Indication: GASTROOESOPHAGEAL REFLUX DISEASE
     Dosage: 40 MG, 1X/DAY
     Route: 048

REACTIONS (6)
  - ARTHRALGIA [None]
  - BLOOD PRESSURE INCREASED [None]
  - BREAST ENLARGEMENT [None]
  - BREAST PAIN [None]
  - BURNING SENSATION [None]
  - MUSCLE SPASMS [None]
